FAERS Safety Report 9143638 (Version 2)
Quarter: 2013Q2

REPORT INFORMATION
  Report Type: Spontaneous
  Country: IT (occurrence: IT)
  Receive Date: 20130306
  Receipt Date: 20130415
  Transmission Date: 20140414
  Serious: Yes (Hospitalization)
  Sender: FDA-Public Use
  Company Number: IT-ROCHE-1198380

PATIENT
  Age: 53 Year
  Sex: Male

DRUGS (2)
  1. RIVOTRIL [Suspect]
     Indication: INTENTIONAL OVERDOSE
     Route: 048
     Dates: start: 20130228, end: 20130228
  2. ZYPREXA [Suspect]
     Indication: INTENTIONAL OVERDOSE
     Route: 048
     Dates: start: 20130228, end: 20130228

REACTIONS (5)
  - Sopor [Recovering/Resolving]
  - Bradyphrenia [Recovering/Resolving]
  - Intentional self-injury [Recovering/Resolving]
  - Bradykinesia [Recovering/Resolving]
  - Overdose [Unknown]
